FAERS Safety Report 12224045 (Version 3)
Quarter: 2016Q2

REPORT INFORMATION
  Report Type: Spontaneous
  Country: US (occurrence: US)
  Receive Date: 20160330
  Receipt Date: 20160411
  Transmission Date: 20160815
  Serious: Yes (Hospitalization)
  Sender: FDA-Public Use
  Company Number: US-ACTELION-A-US2016-133554

PATIENT
  Age: 48 Year
  Sex: Female

DRUGS (1)
  1. VELETRI [Suspect]
     Active Substance: EPOPROSTENOL
     Indication: PULMONARY ARTERIAL HYPERTENSION
     Dosage: 91 NG/KG, PER MIN
     Route: 042
     Dates: start: 20110308

REACTIONS (5)
  - Hepatomegaly [Unknown]
  - Atrial fibrillation [Unknown]
  - Diverticulitis [Unknown]
  - Abdominal pain [Unknown]
  - Gallbladder enlargement [Unknown]
